FAERS Safety Report 8785721 (Version 1)
Quarter: 2012Q4

REPORT INFORMATION
  Report Type: 
  Country: US (occurrence: US)
  Receive Date: 20120914
  Receipt Date: 20120914
  Transmission Date: 20130627
  Serious: No
  Sender: FDA-Public Use
  Company Number: US-009507513-1209USA004303

PATIENT

DRUGS (1)
  1. NUVARING [Suspect]
     Indication: CONTRACEPTION
     Dosage: 1 DF, 3 weeks in, one week out

REACTIONS (3)
  - Breast haemorrhage [Recovering/Resolving]
  - Breast discharge [Recovering/Resolving]
  - Breast tenderness [Recovering/Resolving]
